FAERS Safety Report 6978936-7 (Version None)
Quarter: 2010Q3

REPORT INFORMATION
  Report Type: 
  Country: None (occurrence: None)
  Receive Date: 20100908
  Receipt Date: 20100902
  Transmission Date: 20110219
  Serious: Yes (Death, Other)
  Sender: FDA-Public Use
  Company Number: 2010US003196

PATIENT
  Age: 77 Year
  Sex: Male
  Weight: 80 kg

DRUGS (11)
  1. LEXISCAN [Suspect]
     Indication: SCAN MYOCARDIAL PERFUSION
     Dosage: 0.4 MG, IV NOS
     Route: 042
     Dates: start: 20100709, end: 20100709
  2. COUMADIN [Suspect]
     Indication: ATRIAL FIBRILLATION
     Dosage: 2. 5 MG, /D, ORAL
     Route: 048
     Dates: start: 20100709, end: 20100709
  3. LANOXIN (DIGOXIN) TABLET [Concomitant]
  4. NADOLOL (NADOLOL) TABLET [Concomitant]
  5. LIPITOR [Concomitant]
  6. POTASSIUM CHLORIDE (POTASSIUM CHLORIDE) CAPSULE [Concomitant]
  7. ADVAIR DISKUS 100/50 [Concomitant]
  8. DAILY MULTIVITAMIN (VITAMINS NOS) TABLET [Concomitant]
  9. ACCUPRIL [Concomitant]
  10. FUROSEMIDE (FUROSEMIDE) TABLET [Concomitant]
  11. TRACLEER [Concomitant]

REACTIONS (6)
  - CARDIO-RESPIRATORY ARREST [None]
  - DIZZINESS [None]
  - FALL [None]
  - HAEMORRHAGE [None]
  - LOSS OF CONSCIOUSNESS [None]
  - SKULL FRACTURE [None]
